FAERS Safety Report 18282207 (Version 1)
Quarter: 2020Q3

REPORT INFORMATION
  Report Type: Spontaneous
  Country: US (occurrence: US)
  Receive Date: 20200917
  Receipt Date: 20200917
  Transmission Date: 20201103
  Serious: Yes (Hospitalization)
  Sender: FDA-Public Use
  Company Number: None

PATIENT
  Sex: Female
  Weight: 104.7 kg

DRUGS (1)
  1. CISPLATIN (119875) [Suspect]
     Active Substance: CISPLATIN
     Dates: end: 20200908

REACTIONS (4)
  - Hypochloraemia [None]
  - Pulmonary embolism [None]
  - Deep vein thrombosis [None]
  - Hyponatraemia [None]

NARRATIVE: CASE EVENT DATE: 20200914
